FAERS Safety Report 21211296 (Version 3)
Quarter: 2022Q4

REPORT INFORMATION
  Report Type: Report from Study
  Country: CA (occurrence: CA)
  Receive Date: 20220815
  Receipt Date: 20221108
  Transmission Date: 20230113
  Serious: Yes (Other)
  Sender: FDA-Public Use
  Company Number: CA-NOVARTISPH-NVSC2022CA174495

PATIENT
  Sex: Female

DRUGS (2)
  1. HYRIMOZ [Suspect]
     Active Substance: ADALIMUMAB-ADAZ
     Indication: Rheumatoid arthritis
     Dosage: 40 MG, Q2W
     Route: 058
     Dates: start: 20220725
  2. HYRIMOZ [Suspect]
     Active Substance: ADALIMUMAB-ADAZ
     Dosage: 40 MG, QW (LOADING DOSE) (4 INJECTIONS IN TOTAL)
     Route: 058

REACTIONS (10)
  - Hypertension [Recovered/Resolved]
  - Hypertension [Unknown]
  - Uveitis [Not Recovered/Not Resolved]
  - Eye pain [Unknown]
  - Scar [Unknown]
  - Dizziness [Unknown]
  - Arthralgia [Unknown]
  - Product prescribing issue [Not Recovered/Not Resolved]
  - Inappropriate schedule of product administration [Not Recovered/Not Resolved]
  - Drug ineffective [Unknown]
